FAERS Safety Report 9501147 (Version 1)
Quarter: 2013Q3

REPORT INFORMATION
  Report Type: Spontaneous
  Country: US (occurrence: US)
  Receive Date: 20130905
  Receipt Date: 20130905
  Transmission Date: 20140515
  Serious: Yes (Hospitalization)
  Sender: FDA-Public Use
  Company Number: US-B.I. PHARMACEUTICALS,INC./RIDGEFIELD-2013-BI-27064BP

PATIENT
  Age: 70 Year
  Sex: Male
  Weight: 120 kg

DRUGS (3)
  1. PRADAXA [Suspect]
     Indication: ATRIAL FIBRILLATION
     Dosage: 150 UNK
     Route: 048
  2. CUSTIRSEN [Suspect]
     Indication: PROSTATE CANCER
  3. CABAZITAXEL [Suspect]
     Indication: PROSTATE CANCER
     Dosage: Q3W (25 MG/ M2)
     Route: 042
     Dates: start: 20130524, end: 20130722

REACTIONS (2)
  - Haematuria [Recovered/Resolved]
  - Urinary tract obstruction [Recovered/Resolved]
